FAERS Safety Report 7214898-5 (Version None)
Quarter: 2011Q1

REPORT INFORMATION
  Report Type: 
  Country: None (occurrence: None)
  Receive Date: 20110107
  Receipt Date: 20100428
  Transmission Date: 20110831
  Serious: No
  Sender: FDA-Public Use
  Company Number: A0857095A

PATIENT
  Age: 71 Year
  Sex: Male

DRUGS (5)
  1. GLUCOPHAGE XR [Concomitant]
  2. AVANDIA [Concomitant]
  3. DIOVAN [Concomitant]
  4. LOVAZA [Suspect]
     Dosage: 4CAP PER DAY
     Route: 048
     Dates: start: 20070101
  5. FEXOFENADINE HCL [Concomitant]

REACTIONS (1)
  - RASH GENERALISED [None]
